FAERS Safety Report 11737491 (Version 1)
Quarter: 2015Q4

REPORT INFORMATION
  Report Type: Spontaneous
  Country: US (occurrence: US)
  Receive Date: 20151113
  Receipt Date: 20151113
  Transmission Date: 20160304
  Serious: No
  Sender: FDA-Public Use
  Company Number: US-ENDO PHARMACEUTICALS INC.-2015-003671

PATIENT
  Sex: Male
  Weight: 98.52 kg

DRUGS (2)
  1. XIAFLEX [Suspect]
     Active Substance: COLLAGENASE CLOSTRIDIUM HISTOLYTICUM
     Indication: PEYRONIE^S DISEASE
     Route: 065
     Dates: start: 20150922, end: 20150922
  2. XIAFLEX [Suspect]
     Active Substance: COLLAGENASE CLOSTRIDIUM HISTOLYTICUM
     Route: 065
     Dates: start: 20150916, end: 20150916

REACTIONS (4)
  - Pollakiuria [Unknown]
  - Penile oedema [Unknown]
  - Urine flow decreased [Unknown]
  - Penile haemorrhage [Unknown]

NARRATIVE: CASE EVENT DATE: 2015
